FAERS Safety Report 5304283-5 (Version None)
Quarter: 2007Q2

REPORT INFORMATION
  Report Type: 
  Country: None (occurrence: None)
  Receive Date: 20070423
  Receipt Date: 20070410
  Transmission Date: 20071010
  Serious: Yes (Other)
  Sender: FDA-Public Use
  Company Number: PHEH2007US04797

PATIENT
  Age: 76 Year
  Sex: Female

DRUGS (5)
  1. ZELNORM [Suspect]
     Indication: IRRITABLE BOWEL SYNDROME
     Dosage: 6 MG, BID
     Route: 048
     Dates: start: 20060101, end: 20070321
  2. VITAMIN CAP [Concomitant]
  3. SPIRONOLACTONE W/ HYDROCHLOROTHIAZIDE [Concomitant]
     Indication: CARDIAC DISORDER
  4. CLOPIDOGREL [Concomitant]
     Indication: CARDIAC DISORDER
  5. VYTORIN [Concomitant]
     Indication: HYPERCHOLESTEROLAEMIA

REACTIONS (4)
  - CORONARY ARTERIAL STENT INSERTION [None]
  - FAECES DISCOLOURED [None]
  - FAECES HARD [None]
  - PAINFUL DEFAECATION [None]
